APPROVED DRUG PRODUCT: LORAZEPAM
Active Ingredient: LORAZEPAM
Strength: 4MG/ML
Dosage Form/Route: INJECTABLE;INJECTION
Application: A074300 | Product #003
Applicant: HOSPIRA INC
Approved: Mar 19, 1997 | RLD: No | RS: No | Type: DISCN